FAERS Safety Report 23944712 (Version 1)
Quarter: 2024Q2

REPORT INFORMATION
  Report Type: Report from Study
  Country: FR (occurrence: FR)
  Receive Date: 20240606
  Receipt Date: 20240606
  Transmission Date: 20240716
  Serious: Yes (Other)
  Sender: FDA-Public Use
  Company Number: FR-Merck Healthcare KGaA-2024029241

PATIENT
  Sex: Female

DRUGS (1)
  1. LEVOTHYROXINE [Suspect]
     Active Substance: LEVOTHYROXINE\LEVOTHYROXINE SODIUM
     Indication: Post procedural hypothyroidism
     Dosage: 50 UNSPECIFIED UNIT

REACTIONS (6)
  - Postmenopausal haemorrhage [Unknown]
  - Weight increased [Unknown]
  - Tinnitus [Unknown]
  - Low density lipoprotein increased [Unknown]
  - Thyroid stimulating immunoglobulin increased [Unknown]
  - Nausea [Unknown]
